FAERS Safety Report 4472412-1 (Version None)
Quarter: 2004Q3

REPORT INFORMATION
  Report Type: 
  Country: None (occurrence: None)
  Receive Date: 20040917
  Receipt Date: 20040719
  Transmission Date: 20050211
  Serious: No
  Sender: FDA-Public Use
  Company Number: US-JNJFOC-20040705993

PATIENT
  Age: 15 Year
  Sex: Female
  Weight: 55.3388 kg

DRUGS (2)
  1. ORTHO EVRA [Suspect]
     Indication: DYSMENORRHOEA
     Dosage: 1 DOSE(S), 4 IN 4 WEEK, TRANSDERMAL
     Route: 062
     Dates: start: 20040101
  2. ORTHO EVRA [Suspect]
     Indication: MENSTRUAL DISORDER
     Dosage: 1 DOSE(S), 4 IN 4 WEEK, TRANSDERMAL
     Route: 062
     Dates: start: 20040101

REACTIONS (1)
  - SWELLING [None]
